FAERS Safety Report 9927909 (Version 1)
Quarter: 2014Q1

REPORT INFORMATION
  Report Type: Spontaneous
  Country: TR (occurrence: None)
  Receive Date: 20140224
  Receipt Date: 20140224
  Transmission Date: 20141002
  Serious: Yes (Other)
  Sender: FDA-Public Use
  Company Number: 2014P1001344

PATIENT
  Sex: 0

DRUGS (1)
  1. ZOLEDRONIC ACID INJECTION [Suspect]
     Indication: BONE CANCER METASTATIC
     Route: 042

REACTIONS (3)
  - Arrhythmia [None]
  - Infusion related reaction [None]
  - Atrial fibrillation [None]
